FAERS Safety Report 17583629 (Version 1)
Quarter: 2020Q1

REPORT INFORMATION
  Report Type: Report from Study
  Country: ES (occurrence: ES)
  Receive Date: 20200326
  Receipt Date: 20200326
  Transmission Date: 20200409
  Serious: Yes (Hospitalization)
  Sender: FDA-Public Use
  Company Number: ES-TEVA-2020-ES-1210098

PATIENT
  Age: 72 Year
  Sex: Male

DRUGS (6)
  1. SIMVASTATINA (1023A) [Concomitant]
     Active Substance: SIMVASTATIN
     Indication: DYSLIPIDAEMIA
     Dosage: 20 MG
     Route: 048
     Dates: start: 20150724, end: 20190924
  2. TRAMADOL HIDROCLORURO (2389CH) [Suspect]
     Active Substance: TRAMADOL
     Indication: ARTHRALGIA
     Dosage: 50 MG
     Route: 048
     Dates: start: 20190916, end: 20190924
  3. CARVEDILOL (2431A) [Concomitant]
     Active Substance: CARVEDILOL
     Indication: HYPERTENSION
     Dosage: 25 MG
     Route: 048
     Dates: start: 20190203, end: 20190924
  4. ELIQUIS [Interacting]
     Active Substance: APIXABAN
     Indication: ATRIAL FIBRILLATION
     Dosage: 10 MG
     Route: 048
     Dates: start: 20190312, end: 20190924
  5. TAMSULOSINA HIDROCLORURO (2751CH) [Concomitant]
     Active Substance: TAMSULOSIN HYDROCHLORIDE
     Indication: BENIGN PROSTATIC HYPERPLASIA
     Dosage: 0.4 MG
     Route: 048
     Dates: start: 20171127, end: 20190924
  6. ATACAND PLUS 32 MG/12,5 MG COMPRIMIDOS , 28 COMPRIMIDOS [Concomitant]
     Indication: HYPERTENSION
     Dosage: 1 DF
     Route: 048
     Dates: start: 20141222, end: 20190924

REACTIONS (2)
  - Drug interaction [Unknown]
  - Haemorrhage intracranial [Recovered/Resolved]

NARRATIVE: CASE EVENT DATE: 20190923
